FAERS Safety Report 8134706-8 (Version None)
Quarter: 2012Q1

REPORT INFORMATION
  Report Type: 
  Country: None (occurrence: None)
  Receive Date: 20120214
  Receipt Date: 20120206
  Transmission Date: 20120608
  Serious: No
  Sender: FDA-Public Use
  Company Number: US-B.I. PHARMACEUTICALS,INC./RIDGEFIELD-2012-BP-02325BP

PATIENT
  Sex: Male
  Weight: 97.5 kg

DRUGS (11)
  1. DIOVAN [Concomitant]
     Dosage: 200 MG
  2. RIVAROXABAN [Suspect]
     Indication: ATRIAL FIBRILLATION
     Dosage: 20 MG
     Dates: start: 20120101
  3. MYSOLINE [Concomitant]
     Indication: CARDIAC DISORDER
     Dosage: 200 MG
  4. MYSOLINE [Concomitant]
     Dosage: 200 MG
  5. DIOVAN [Concomitant]
     Indication: BLOOD PRESSURE
     Route: 048
  6. PRADAXA [Suspect]
     Indication: ATRIAL FIBRILLATION
     Route: 048
     Dates: start: 20110101, end: 20110101
  7. CARDIZEM [Concomitant]
     Indication: CARDIAC DISORDER
     Dosage: 120 MG
  8. DOXASIN [Concomitant]
     Dosage: 200 MG
  9. COUMADIN [Concomitant]
     Indication: ANTICOAGULANT THERAPY
     Dosage: 2 MG
     Route: 048
  10. DOXASIN [Concomitant]
     Indication: BLOOD PRESSURE
     Dosage: 8 MG
     Route: 048
  11. COUMADIN [Concomitant]
     Dosage: 200 MG

REACTIONS (1)
  - PAIN [None]
